FAERS Safety Report 8428913-4 (Version None)
Quarter: 2012Q2

REPORT INFORMATION
  Report Type: 
  Country: None (occurrence: None)
  Receive Date: 20120612
  Receipt Date: 20120607
  Transmission Date: 20120825
  Serious: No
  Sender: FDA-Public Use
  Company Number: US-BAYER-2012-056654

PATIENT
  Age: 22 Year
  Sex: Male

DRUGS (2)
  1. GADAVIST [Suspect]
     Indication: INNER EAR DISORDER
     Dosage: 6 ML, ONCE
     Route: 042
     Dates: start: 20120605, end: 20120605
  2. GADAVIST [Suspect]
     Indication: DEAFNESS UNILATERAL

REACTIONS (2)
  - NAUSEA [None]
  - DIZZINESS [None]
